FAERS Safety Report 17520245 (Version 1)
Quarter: 2020Q1

REPORT INFORMATION
  Report Type: Report from Study
  Country: None (occurrence: US)
  Receive Date: 20200309
  Receipt Date: 20200309
  Transmission Date: 20200409
  Serious: Yes (Life-Threatening, Hospitalization)
  Sender: FDA-Public Use
  Company Number: US-ABBVIE-20P-163-3301582-00

PATIENT
  Age: 18 Year
  Sex: Male
  Weight: 53.6 kg

DRUGS (8)
  1. ABT-263 [Suspect]
     Active Substance: NAVITOCLAX
     Route: 048
     Dates: start: 20200302
  2. DEXAMETHASONE. [Concomitant]
     Active Substance: DEXAMETHASONE
     Indication: B PRECURSOR TYPE ACUTE LEUKAEMIA
     Route: 048
     Dates: start: 20200224, end: 20200228
  3. PEG [Concomitant]
     Active Substance: POLYETHYLENE GLYCOLS
     Indication: B PRECURSOR TYPE ACUTE LEUKAEMIA
     Route: 042
     Dates: start: 20200224, end: 20200224
  4. VINCRISTINE [Concomitant]
     Active Substance: VINCRISTINE
     Indication: B PRECURSOR TYPE ACUTE LEUKAEMIA
     Route: 042
     Dates: start: 20200224
  5. VENETOCLAX. [Suspect]
     Active Substance: VENETOCLAX
     Route: 048
     Dates: start: 20200229
  6. ABT-263 [Suspect]
     Active Substance: NAVITOCLAX
     Indication: B PRECURSOR TYPE ACUTE LEUKAEMIA
     Route: 048
     Dates: start: 20200227, end: 20200229
  7. VENETOCLAX. [Suspect]
     Active Substance: VENETOCLAX
     Indication: B PRECURSOR TYPE ACUTE LEUKAEMIA
     Route: 048
     Dates: start: 20200225, end: 20200228
  8. METHOTREXATE. [Concomitant]
     Active Substance: METHOTREXATE
     Indication: B PRECURSOR TYPE ACUTE LEUKAEMIA
     Route: 036
     Dates: start: 20200219, end: 20200219

REACTIONS (6)
  - Sepsis [Recovering/Resolving]
  - Pneumonia [Recovering/Resolving]
  - Back pain [Recovering/Resolving]
  - Staphylococcal infection [Recovering/Resolving]
  - Dyspnoea [Recovered/Resolved]
  - Hypotension [Recovered/Resolved]

NARRATIVE: CASE EVENT DATE: 20200228
